FAERS Safety Report 8991086 (Version 1)
Quarter: 2012Q4

REPORT INFORMATION
  Report Type: Spontaneous
  Country: US (occurrence: None)
  Receive Date: 20121220
  Receipt Date: 20121220
  Transmission Date: 20130627
  Serious: Yes (Hospitalization)
  Sender: FDA-Public Use
  Company Number: 2012-236

PATIENT
  Sex: Female

DRUGS (8)
  1. PRIALT [Suspect]
     Indication: PAIN
     Dosage: Unk ug, once/hour, Intrathecal
     Route: 037
  2. PRIALT [Suspect]
     Indication: POST LAMINECTOMY SYNDROME
     Dosage: Unk ug, once/hour, Intrathecal
     Route: 037
  3. PRIALT [Suspect]
     Indication: PAIN
     Dosage: Unk mcg, once/hour, Intrathecal
     Route: 037
     Dates: start: 201111
  4. PRIALT [Suspect]
     Indication: POST LAMINECTOMY SYNDROME
     Dosage: Unk mcg, once/hour, Intrathecal
     Route: 037
     Dates: start: 201111
  5. PRIALT [Suspect]
     Indication: PAIN
     Dosage: Unk mcg, once/hour, Intrathecal
     Route: 037
  6. PRIALT [Suspect]
     Indication: POST LAMINECTOMY SYNDROME
     Dosage: Unk mcg, once/hour, Intrathecal
     Route: 037
  7. DILAUDID [Suspect]
     Indication: PAIN
     Dosage: Unk mg, once/hour, Intrathecal
     Route: 037
  8. DILAUDID [Suspect]
     Indication: POST LAMINECTOMY SYNDROME
     Dosage: Unk mg, once/hour, Intrathecal
     Route: 037

REACTIONS (6)
  - Gastrointestinal disorder [None]
  - Fall [None]
  - Post procedural infection [None]
  - Drug effect decreased [None]
  - Knee operation [None]
  - Device malfunction [None]
